FAERS Safety Report 4655071-4 (Version None)
Quarter: 2005Q2

REPORT INFORMATION
  Report Type: 
  Country: None (occurrence: None)
  Receive Date: 20050503
  Receipt Date: 20050421
  Transmission Date: 20051028
  Serious: No
  Sender: FDA-Public Use
  Company Number: 2005AP02491

PATIENT
  Age: 66 Year
  Sex: Female

DRUGS (6)
  1. PROPOFOL [Suspect]
     Indication: SENSORY DISTURBANCE
  2. MORPHINE SULFATE [Suspect]
     Dosage: 35 MG DAILY IV
     Route: 042
     Dates: start: 20040414, end: 20040414
  3. MORPHINE SULFATE [Suspect]
     Dosage: 10 MG Q1H IV
     Route: 042
  4. PARACETAMOL [Concomitant]
  5. MAXOLON [Concomitant]
  6. DYNASTAT [Concomitant]

REACTIONS (2)
  - RESPIRATORY DEPRESSION [None]
  - SOMNOLENCE [None]
